FAERS Safety Report 5518263-8 (Version None)
Quarter: 2007Q4

REPORT INFORMATION
  Report Type: 
  Country: None (occurrence: None)
  Receive Date: 20071115
  Receipt Date: 20071106
  Transmission Date: 20080405
  Serious: Yes (Death)
  Sender: FDA-Public Use
  Company Number: B0493090A

PATIENT
  Age: 67 Year
  Sex: Female
  Weight: 50 kg

DRUGS (3)
  1. ARIXTRA [Suspect]
     Dosage: 2.5MG PER DAY
     Route: 058
  2. NON STEROIDAL ANTI-INFLAMMATORY DRUG [Concomitant]
  3. ANGIOTENSIN-CONVERTING ENZYME INHIBITOR (UNSPECIFIED) [Concomitant]

REACTIONS (7)
  - DYSPNOEA [None]
  - HAEMATOMA [None]
  - HAEMOGLOBIN DECREASED [None]
  - HYPERKALAEMIA [None]
  - MUSCLE HAEMORRHAGE [None]
  - RENAL FAILURE ACUTE [None]
  - SHOCK HAEMORRHAGIC [None]
